FAERS Safety Report 4350568-9 (Version None)
Quarter: 2004Q2

REPORT INFORMATION
  Report Type: 
  Country: None (occurrence: None)
  Receive Date: 20040427
  Receipt Date: 20040412
  Transmission Date: 20050107
  Serious: Yes (Hospitalization)
  Sender: FDA-Public Use
  Company Number: 191720

PATIENT
  Age: 47 Year
  Sex: Female

DRUGS (13)
  1. AVONEX [Suspect]
     Indication: MULTIPLE SCLEROSIS
     Dosage: 30 MCG QW IM
     Route: 030
     Dates: start: 19980101, end: 19990101
  2. AVONEX [Suspect]
     Indication: MULTIPLE SCLEROSIS
     Dosage: 30 MCG QW IM
     Route: 030
     Dates: start: 20000101
  3. PROVIGIL [Concomitant]
  4. SYMMETREL [Concomitant]
  5. RITALIN [Concomitant]
  6. ACYCLOVIR [Concomitant]
  7. CELEBREX [Concomitant]
  8. ZYRTEC [Concomitant]
  9. NORCO [Concomitant]
  10. DURATUSS [Concomitant]
  11. GUAIFENESIN [Concomitant]
  12. ESTRATEST [Concomitant]
  13. PREVACID [Concomitant]

REACTIONS (11)
  - BACK INJURY [None]
  - BACK PAIN [None]
  - BLOOD PRESSURE INCREASED [None]
  - CONDITION AGGRAVATED [None]
  - DEPRESSION [None]
  - DYSPNOEA [None]
  - GASTROOESOPHAGEAL REFLUX DISEASE [None]
  - HYPOAESTHESIA [None]
  - INTERVERTEBRAL DISC PROTRUSION [None]
  - LATEX ALLERGY [None]
  - MIGRAINE [None]
